FAERS Safety Report 4970034-7 (Version None)
Quarter: 2006Q2

REPORT INFORMATION
  Report Type: 
  Country: None (occurrence: None)
  Receive Date: 20060406
  Receipt Date: 20060404
  Transmission Date: 20061013
  Serious: Yes (Hospitalization)
  Sender: FDA-Public Use
  Company Number: US-2004-029794

PATIENT
  Age: 56 Year
  Sex: Female
  Weight: 78 kg

DRUGS (7)
  1. CLIMARA [Suspect]
     Indication: HORMONE REPLACEMENT THERAPY
     Dosage: 0.05 MG, CONT, TRANSDERMAL
     Route: 062
     Dates: start: 19970701, end: 19980101
  2. PREMARIN [Suspect]
     Indication: HORMONE REPLACEMENT THERAPY
     Dates: start: 19970101, end: 19990101
  3. VIVELLE [Suspect]
     Indication: HORMONE REPLACEMENT THERAPY
     Dosage: 0.05 MG,
     Dates: start: 19960617
  4. PREMPRO [Suspect]
     Indication: HORMONE REPLACEMENT THERAPY
     Dates: end: 19960616
  5. ESTRACE [Suspect]
     Indication: HORMONE REPLACEMENT THERAPY
     Dosage: 1 MG, 1X/DAY,
     Dates: start: 19970101, end: 19970701
  6. AUGMENTIN '125' [Concomitant]
  7. BELLAMINE S (BELLADONNA ALKALOIDS, PHENOBARBITAL) [Concomitant]

REACTIONS (9)
  - ATRIAL HYPERTROPHY [None]
  - BREAST CANCER IN SITU [None]
  - FAT NECROSIS [None]
  - FIBROCYSTIC BREAST DISEASE [None]
  - METAPLASIA [None]
  - POSTOPERATIVE THROMBOSIS [None]
  - RADIATION SKIN INJURY [None]
  - SCAR [None]
  - WEIGHT INCREASED [None]
